FAERS Safety Report 13815490 (Version 1)
Quarter: 2017Q3

REPORT INFORMATION
  Report Type: Spontaneous
  Country: US (occurrence: US)
  Receive Date: 20170731
  Receipt Date: 20170731
  Transmission Date: 20171127
  Serious: Yes (Other)
  Sender: FDA-Public Use
  Company Number: None

PATIENT
  Age: 52 Year
  Sex: Female
  Weight: 68.4 kg

DRUGS (16)
  1. DILAUDID [Concomitant]
     Active Substance: HYDROMORPHONE HYDROCHLORIDE
  2. HYDROCHLOROTHIAZIDE. [Concomitant]
     Active Substance: HYDROCHLOROTHIAZIDE
  3. LISINOPRIL. [Concomitant]
     Active Substance: LISINOPRIL
  4. NEURONTIN [Concomitant]
     Active Substance: GABAPENTIN
  5. TIZANIDINE. [Concomitant]
     Active Substance: TIZANIDINE
  6. VITAMIN D [Concomitant]
     Active Substance: CHOLECALCIFEROL
  7. IBRATROPIUM [Concomitant]
  8. OMEPRAZOLE. [Concomitant]
     Active Substance: OMEPRAZOLE
  9. LETHOCITIRIZINE [Concomitant]
  10. LEFLUNOMIDE. [Concomitant]
     Active Substance: LEFLUNOMIDE
  11. OTEZLA [Suspect]
     Active Substance: APREMILAST
     Indication: PSORIATIC ARTHROPATHY
     Dosage: ?          QUANTITY:1 TABLET(S);?
     Route: 048
     Dates: start: 20170720, end: 20170726
  12. MIRALAX [Concomitant]
     Active Substance: POLYETHYLENE GLYCOL 3350
  13. VITAMIN D [Concomitant]
     Active Substance: CHOLECALCIFEROL
  14. AMBIEN [Concomitant]
     Active Substance: ZOLPIDEM TARTRATE
  15. MS CONTIN [Concomitant]
     Active Substance: MORPHINE SULFATE
  16. ENBREL [Concomitant]
     Active Substance: ETANERCEPT

REACTIONS (10)
  - Gait inability [None]
  - Hypoaesthesia [None]
  - Headache [None]
  - Arthralgia [None]
  - Paraesthesia [None]
  - Pain in extremity [None]
  - Feeling abnormal [None]
  - Diarrhoea [None]
  - Tendon pain [None]
  - Pain [None]

NARRATIVE: CASE EVENT DATE: 20170726
